FAERS Safety Report 9300575 (Version 1)
Quarter: 2013Q2

REPORT INFORMATION
  Report Type: Report from Study
  Country: MX (occurrence: MX)
  Receive Date: 20130521
  Receipt Date: 20130521
  Transmission Date: 20140414
  Serious: Yes (Death)
  Sender: FDA-Public Use
  Company Number: PHHY2013MX050399

PATIENT
  Age: 76 Year
  Sex: Male

DRUGS (2)
  1. EXELON PATCH [Suspect]
     Indication: SENILE DEMENTIA
     Dosage: 4.6 MG, DAILY
     Route: 062
  2. STALEVO [Suspect]
     Dosage: 2 UKN, DAILY

REACTIONS (1)
  - Coma [Fatal]
